FAERS Safety Report 6864641-4 (Version None)
Quarter: 2010Q3

REPORT INFORMATION
  Report Type: 
  Country: None (occurrence: None)
  Receive Date: 20100721
  Receipt Date: 20080428
  Transmission Date: 20110219
  Serious: No
  Sender: FDA-Public Use
  Company Number: US-PFIZER INC-2008027202

PATIENT
  Sex: Female
  Weight: 90.7 kg

DRUGS (11)
  1. CHANTIX [Suspect]
     Indication: SMOKING CESSATION THERAPY
     Dates: start: 20080301
  2. VITAMIN B-12 [Concomitant]
  3. TRIAMTERENE [Concomitant]
  4. QUINAPRIL [Concomitant]
  5. AMLODIPINE [Concomitant]
  6. LORAZEPAM [Concomitant]
  7. LOVASTATIN [Concomitant]
  8. PLAVIX [Concomitant]
  9. NEXIUM [Concomitant]
  10. LEVOTHYROXINE SODIUM [Concomitant]
  11. TRAZODONE HYDROCHLORIDE [Concomitant]

REACTIONS (7)
  - DIZZINESS [None]
  - DYSPNOEA [None]
  - EYE DISORDER [None]
  - HEAD DISCOMFORT [None]
  - HYPOAESTHESIA [None]
  - LIP DISORDER [None]
  - PARAESTHESIA [None]
